FAERS Safety Report 4459269-X (Version None)
Quarter: 2004Q3

REPORT INFORMATION
  Report Type: 
  Country: None (occurrence: None)
  Receive Date: 20040927
  Receipt Date: 20040917
  Transmission Date: 20050211
  Serious: Yes (Other)
  Sender: FDA-Public Use
  Company Number: DE-AMGEN-US092362

PATIENT
  Age: 25 Year
  Sex: Female

DRUGS (1)
  1. ENBREL [Suspect]
     Indication: AUTOIMMUNE DISORDER

REACTIONS (7)
  - ARTHRALGIA [None]
  - DEMYELINATION [None]
  - EYE DISORDER [None]
  - MUSCULOSKELETAL STIFFNESS [None]
  - OPTIC NEURITIS [None]
  - PYREXIA [None]
  - SKIN LESION [None]
